FAERS Safety Report 11364403 (Version 1)
Quarter: 2015Q3

REPORT INFORMATION
  Report Type: Spontaneous
  Country: US (occurrence: None)
  Receive Date: 20150810
  Receipt Date: 20150810
  Transmission Date: 20151125
  Serious: No
  Sender: FDA-Public Use
  Company Number: None

PATIENT
  Age: 26 Year
  Sex: Female

DRUGS (1)
  1. EXJADE [Suspect]
     Active Substance: DEFERASIROX
     Indication: NEOPLASM
     Route: 048
     Dates: start: 20150430

REACTIONS (2)
  - Sickle cell anaemia with crisis [None]
  - Drug dose omission [None]

NARRATIVE: CASE EVENT DATE: 20150804
